FAERS Safety Report 9908026 (Version 1)
Quarter: 2014Q1

REPORT INFORMATION
  Report Type: Report from Study
  Country: US (occurrence: US)
  Receive Date: 20140219
  Receipt Date: 20140219
  Transmission Date: 20141002
  Serious: Yes (Other)
  Sender: FDA-Public Use
  Company Number: US-ROCHE-1345885

PATIENT
  Age: 79 Year
  Sex: Female

DRUGS (5)
  1. AVASTIN [Suspect]
     Indication: AGE-RELATED MACULAR DEGENERATION
     Dosage: LEFT EYE
     Route: 050
     Dates: start: 20100726
  2. AVASTIN [Suspect]
     Dosage: RIGHT EYE
     Route: 050
     Dates: start: 20110526
  3. ZYMAXID [Concomitant]
     Dosage: 1 DROP IN EACH EYE
     Route: 031
     Dates: start: 20110705
  4. LISINOPRIL [Concomitant]
     Route: 048
     Dates: start: 20100618
  5. TOBRAMYCIN SULFATE [Concomitant]
     Dosage: USE AS DIRECTED
     Route: 065
     Dates: start: 20110713

REACTIONS (8)
  - Eye pruritus [Unknown]
  - Conjunctival haemorrhage [Unknown]
  - Periorbital oedema [Unknown]
  - Dry eye [Unknown]
  - Retinal degeneration [Unknown]
  - Retinal disorder [Unknown]
  - Drug hypersensitivity [Unknown]
  - Off label use [Unknown]
